FAERS Safety Report 21503594 (Version 2)
Quarter: 2022Q4

REPORT INFORMATION
  Report Type: Spontaneous
  Country: JP (occurrence: JP)
  Receive Date: 20221025
  Receipt Date: 20221028
  Transmission Date: 20230112
  Serious: Yes (Other)
  Sender: FDA-Public Use
  Company Number: JP-ELI_LILLY_AND_COMPANY-JP202210006218

PATIENT
  Age: 75 Year
  Sex: Male

DRUGS (2)
  1. CYRAMZA [Suspect]
     Active Substance: RAMUCIRUMAB
     Indication: HER2 positive gastric cancer
     Dosage: UNK
     Route: 041
     Dates: start: 202206, end: 202210
  2. PACLITAXEL [Suspect]
     Active Substance: PACLITAXEL
     Indication: HER2 positive gastric cancer
     Dosage: UNK
     Route: 041
     Dates: start: 202206

REACTIONS (5)
  - Hepatic atrophy [Not Recovered/Not Resolved]
  - Adrenal insufficiency [Unknown]
  - Ascites [Not Recovered/Not Resolved]
  - Oedema [Not Recovered/Not Resolved]
  - Hypoalbuminaemia [Not Recovered/Not Resolved]

NARRATIVE: CASE EVENT DATE: 20220901
